FAERS Safety Report 8661027 (Version 61)
Quarter: 2024Q3

REPORT INFORMATION
  Report Type: Report from Study
  Country: CA (occurrence: CA)
  Receive Date: 20120711
  Receipt Date: 20240916
  Transmission Date: 20241016
  Serious: Yes (Hospitalization, Other)
  Sender: ROCHE
  Company Number: CA-ROCHE-1085962

PATIENT
  Age: 78 Year
  Sex: Female

DRUGS (44)
  1. XOLAIR [Suspect]
     Active Substance: OMALIZUMAB
     Indication: Asthma
     Route: 058
     Dates: start: 20120509
  2. XOLAIR [Suspect]
     Active Substance: OMALIZUMAB
     Route: 058
     Dates: start: 20130917
  3. XOLAIR [Suspect]
     Active Substance: OMALIZUMAB
     Route: 058
     Dates: start: 20140924
  4. XOLAIR [Suspect]
     Active Substance: OMALIZUMAB
     Route: 058
     Dates: start: 20160225
  5. XOLAIR [Suspect]
     Active Substance: OMALIZUMAB
     Route: 058
     Dates: start: 20180524
  6. XOLAIR [Suspect]
     Active Substance: OMALIZUMAB
     Route: 058
     Dates: start: 20180607
  7. XOLAIR [Suspect]
     Active Substance: OMALIZUMAB
     Route: 058
     Dates: start: 2017
  8. XOLAIR [Suspect]
     Active Substance: OMALIZUMAB
     Route: 058
     Dates: start: 20180802
  9. XOLAIR [Suspect]
     Active Substance: OMALIZUMAB
     Route: 058
     Dates: start: 20180816
  10. XOLAIR [Suspect]
     Active Substance: OMALIZUMAB
     Route: 058
     Dates: start: 20180830
  11. XOLAIR [Suspect]
     Active Substance: OMALIZUMAB
     Route: 058
     Dates: start: 20180927
  12. XOLAIR [Suspect]
     Active Substance: OMALIZUMAB
     Route: 058
     Dates: start: 20181011
  13. XOLAIR [Suspect]
     Active Substance: OMALIZUMAB
     Route: 058
     Dates: start: 20181025
  14. XOLAIR [Suspect]
     Active Substance: OMALIZUMAB
     Route: 058
     Dates: start: 20181113
  15. XOLAIR [Suspect]
     Active Substance: OMALIZUMAB
     Route: 058
     Dates: start: 20190117
  16. XOLAIR [Suspect]
     Active Substance: OMALIZUMAB
     Route: 058
     Dates: start: 20181113
  17. XOLAIR [Suspect]
     Active Substance: OMALIZUMAB
     Route: 058
     Dates: start: 20190117
  18. XOLAIR [Suspect]
     Active Substance: OMALIZUMAB
     Route: 058
     Dates: start: 20190215
  19. XOLAIR [Suspect]
     Active Substance: OMALIZUMAB
     Route: 058
     Dates: start: 20190314
  20. XOLAIR [Suspect]
     Active Substance: OMALIZUMAB
     Route: 058
     Dates: start: 20190411
  21. XOLAIR [Suspect]
     Active Substance: OMALIZUMAB
     Route: 058
     Dates: start: 20190509
  22. XOLAIR [Suspect]
     Active Substance: OMALIZUMAB
     Route: 058
     Dates: start: 20190610
  23. XOLAIR [Suspect]
     Active Substance: OMALIZUMAB
     Route: 058
     Dates: start: 20190710
  24. XOLAIR [Suspect]
     Active Substance: OMALIZUMAB
     Route: 058
     Dates: start: 20191024
  25. XOLAIR [Suspect]
     Active Substance: OMALIZUMAB
     Route: 058
     Dates: start: 20191218
  26. XOLAIR [Suspect]
     Active Substance: OMALIZUMAB
     Route: 058
     Dates: start: 2019
  27. XOLAIR [Suspect]
     Active Substance: OMALIZUMAB
     Route: 058
  28. XOLAIR [Suspect]
     Active Substance: OMALIZUMAB
     Route: 058
     Dates: start: 20160915
  29. XOLAIR [Suspect]
     Active Substance: OMALIZUMAB
     Route: 058
     Dates: start: 20220329
  30. XOLAIR [Suspect]
     Active Substance: OMALIZUMAB
     Dosage: 300 MG, BIW (VIAL)
     Route: 058
  31. XOLAIR [Suspect]
     Active Substance: OMALIZUMAB
     Route: 058
  32. XOLAIR [Suspect]
     Active Substance: OMALIZUMAB
     Route: 058
  33. XOLAIR [Suspect]
     Active Substance: OMALIZUMAB
     Route: 058
  34. XOLAIR [Suspect]
     Active Substance: OMALIZUMAB
     Route: 058
  35. BISOPROLOL [Suspect]
     Active Substance: BISOPROLOL\BISOPROLOL FUMARATE
     Indication: Product used for unknown indication
     Route: 048
  36. AVELOX [Concomitant]
     Active Substance: MOXIFLOXACIN HYDROCHLORIDE
     Indication: Product used for unknown indication
     Dosage: UNK
     Route: 065
  37. VENTOLIN [Concomitant]
     Active Substance: ALBUTEROL SULFATE
     Indication: Product used for unknown indication
     Route: 065
  38. METOPROLOL [Concomitant]
     Active Substance: METOPROLOL
     Indication: Heart rate increased
     Dosage: 12.5 MG, BID
  39. SINGULAIR [Concomitant]
     Active Substance: MONTELUKAST SODIUM
     Indication: Product used for unknown indication
  40. PULMICORT TURBUHALER [Concomitant]
     Active Substance: BUDESONIDE
     Indication: Product used for unknown indication
  41. BREO ELLIPTA [Concomitant]
     Active Substance: FLUTICASONE FUROATE\VILANTEROL TRIFENATATE
     Indication: Product used for unknown indication
  42. BETAMETHASONE DIPROPIONATE\CALCIPOTRIENE MONOHYDRATE [Concomitant]
     Active Substance: BETAMETHASONE DIPROPIONATE\CALCIPOTRIENE MONOHYDRATE
     Route: 065
  43. BETADERM [Concomitant]
     Active Substance: BETAMETHASONE VALERATE
     Indication: Product used for unknown indication
     Route: 065
  44. ALBUTEROL [Concomitant]
     Active Substance: ALBUTEROL
     Indication: Product used for unknown indication
     Dosage: UNK

REACTIONS (66)
  - Bronchitis [Not Recovered/Not Resolved]
  - Pulmonary congestion [Not Recovered/Not Resolved]
  - Pneumonia [Recovered/Resolved]
  - Lyme disease [Unknown]
  - Urinary tract infection [Recovered/Resolved]
  - Irritable bowel syndrome [Unknown]
  - Abdominal discomfort [Unknown]
  - Polyp [Recovered/Resolved]
  - Haematochezia [Unknown]
  - Otitis media chronic [Unknown]
  - Neuropathy peripheral [Unknown]
  - Presyncope [Not Recovered/Not Resolved]
  - Fall [Unknown]
  - Head injury [Unknown]
  - Influenza [Unknown]
  - Musculoskeletal chest pain [Unknown]
  - Hypopnoea [Unknown]
  - Amnesia [Unknown]
  - Cystitis [Recovered/Resolved]
  - Flank pain [Unknown]
  - Hypoacusis [Unknown]
  - Renal cyst [Unknown]
  - Viral infection [Recovering/Resolving]
  - Body temperature increased [Unknown]
  - Ear congestion [Unknown]
  - Sinus disorder [Recovered/Resolved]
  - Tenderness [Not Recovered/Not Resolved]
  - Fungal infection [Unknown]
  - Oropharyngeal pain [Unknown]
  - Rubber sensitivity [Unknown]
  - Ear inflammation [Unknown]
  - Hypertension [Not Recovered/Not Resolved]
  - Pain [Unknown]
  - Chest discomfort [Unknown]
  - Oropharyngeal pain [Unknown]
  - Nasopharyngitis [Unknown]
  - Rhinorrhoea [Unknown]
  - Pyrexia [Unknown]
  - Headache [Unknown]
  - Paraesthesia [Not Recovered/Not Resolved]
  - Hypersensitivity [Unknown]
  - Otorrhoea [Unknown]
  - Dizziness [Unknown]
  - Injection site swelling [Unknown]
  - Injection site pain [Recovered/Resolved]
  - Incorrect dose administered [Unknown]
  - Asthma [Recovering/Resolving]
  - Chest injury [Unknown]
  - Obstructive airways disorder [Unknown]
  - Dizziness [Unknown]
  - Cough [Not Recovered/Not Resolved]
  - Hepatic function abnormal [Unknown]
  - Abdominal pain [Recovered/Resolved]
  - Mucous stools [Recovered/Resolved]
  - Productive cough [Unknown]
  - Product dose omission issue [Unknown]
  - Chronic obstructive pulmonary disease [Recovering/Resolving]
  - Limb injury [Unknown]
  - Malaise [Unknown]
  - Wheezing [Unknown]
  - Osteoarthritis [Unknown]
  - Poor quality sleep [Unknown]
  - Tinnitus [Unknown]
  - Dyspnoea [Not Recovered/Not Resolved]
  - Lymphadenopathy [Unknown]
  - Sputum increased [Unknown]

NARRATIVE: CASE EVENT DATE: 20120618
